FAERS Safety Report 9283807 (Version 3)
Quarter: 2013Q2

REPORT INFORMATION
  Report Type: Spontaneous
  Country: SG (occurrence: SG)
  Receive Date: 20130510
  Receipt Date: 20130517
  Transmission Date: 20140414
  Serious: Yes (Other)
  Sender: FDA-Public Use
  Company Number: SG-009507513-1304SGP017342

PATIENT
  Sex: Female

DRUGS (3)
  1. PUREGON [Suspect]
     Indication: OVULATION INDUCTION
     Dosage: 300 UNITS PER DAY
     Route: 058
     Dates: start: 20130426, end: 20130428
  2. MENOPUR [Concomitant]
  3. CETRORELIX [Concomitant]

REACTIONS (3)
  - Injection site oedema [Recovered/Resolved]
  - Injection site erythema [Recovered/Resolved]
  - Injection site pain [Recovered/Resolved]
